FAERS Safety Report 25955538 (Version 2)
Quarter: 2025Q4

REPORT INFORMATION
  Report Type: Spontaneous
  Country: BR (occurrence: BR)
  Receive Date: 20251024
  Receipt Date: 20251230
  Transmission Date: 20260118
  Serious: Yes (Hospitalization)
  Sender: NOVARTIS
  Company Number: BR-002147023-NVSC2025BR162075

PATIENT
  Sex: Male

DRUGS (1)
  1. COSENTYX [Suspect]
     Active Substance: SECUKINUMAB
     Indication: Hidradenitis
     Dosage: UNK
     Route: 065

REACTIONS (3)
  - Cardiac autonomic neuropathy [Unknown]
  - Syncope [Unknown]
  - Skin lesion [Unknown]

NARRATIVE: CASE EVENT DATE: 20250101
